FAERS Safety Report 5652551-X (Version None)
Quarter: 2008Q1

REPORT INFORMATION
  Report Type: 
  Country: None (occurrence: None)
  Receive Date: 20080306
  Receipt Date: 20080303
  Transmission Date: 20080703
  Serious: Yes (Other)
  Sender: FDA-Public Use
  Company Number: TR-BRISTOL-MYERS SQUIBB COMPANY-14099337

PATIENT
  Age: 10 Year
  Sex: Male

DRUGS (3)
  1. VINCRISTINE SULFATE [Suspect]
     Indication: RHABDOMYOSARCOMA
     Dosage: CUMULATIVE DOSE OF 16.5MG/M2
  2. CYCLOPHOSPHAMIDE [Suspect]
     Indication: RHABDOMYOSARCOMA
  3. DACTINOMYCIN [Suspect]
     Indication: RHABDOMYOSARCOMA

REACTIONS (2)
  - NEUROGENIC BLADDER [None]
  - NEUROPATHY PERIPHERAL [None]
